FAERS Safety Report 21537524 (Version 2)
Quarter: 2022Q4

REPORT INFORMATION
  Report Type: Spontaneous
  Country: US (occurrence: US)
  Receive Date: 20221101
  Receipt Date: 20221208
  Transmission Date: 20230112
  Serious: Yes (Other)
  Sender: FDA-Public Use
  Company Number: US-UNITED THERAPEUTICS-UNT-2022-025531

PATIENT
  Sex: Female
  Weight: 73.968 kg

DRUGS (3)
  1. REMODULIN [Suspect]
     Active Substance: TREPROSTINIL
     Indication: Pulmonary arterial hypertension
     Dosage: UNK, CONTINUING
     Route: 058
     Dates: start: 20200417
  2. REMODULIN [Suspect]
     Active Substance: TREPROSTINIL
     Dosage: 0.147 ?G/KG, CONTINUING
     Route: 058
  3. REMODULIN [Suspect]
     Active Substance: TREPROSTINIL
     Dosage: 0.157 ?G/KG, CONTINUING
     Route: 058

REACTIONS (3)
  - Pneumonia [Recovered/Resolved]
  - Dyspnoea [Unknown]
  - Cough [Unknown]
